FAERS Safety Report 4580570-3 (Version None)
Quarter: 2005Q1

REPORT INFORMATION
  Report Type: 
  Country: None (occurrence: None)
  Receive Date: 20050214
  Receipt Date: 20040414
  Transmission Date: 20050727
  Serious: No
  Sender: FDA-Public Use
  Company Number: US-GLAXOSMITHKLINE-A0507185A

PATIENT
  Sex: Male

DRUGS (2)
  1. LAMICTAL [Suspect]
     Indication: BIPOLAR DISORDER
     Route: 048
  2. ESKALITH [Concomitant]

REACTIONS (5)
  - COUGH [None]
  - DISORIENTATION [None]
  - PRURITUS [None]
  - PYREXIA [None]
  - STOMATITIS [None]
